FAERS Safety Report 9200052 (Version 1)
Quarter: 2013Q1

REPORT INFORMATION
  Report Type: Spontaneous
  Country: FR (occurrence: FR)
  Receive Date: 20130329
  Receipt Date: 20130329
  Transmission Date: 20140127
  Serious: Yes (Hospitalization)
  Sender: FDA-Public Use
  Company Number: FR-SANOFI-AVENTIS-2013SA031288

PATIENT
  Age: 80 Year
  Sex: Male

DRUGS (14)
  1. PLAVIX [Suspect]
     Indication: PRODUCT USED FOR UNKNOWN INDICATION
     Route: 048
     Dates: start: 20130116, end: 20130220
  2. PRADAXA [Interacting]
     Indication: PRODUCT USED FOR UNKNOWN INDICATION
     Route: 048
     Dates: start: 20130116, end: 20130219
  3. ATARAX [Concomitant]
     Dosage: STRENGTH: 100 MG
     Route: 048
     Dates: start: 20130116
  4. INEXIUM [Concomitant]
     Dosage: STRENGTH: 20 MG
     Route: 048
     Dates: start: 20130116
  5. PRAXILENE [Concomitant]
     Dosage: STRENGTH: 200 MG
     Route: 048
     Dates: start: 20130116
  6. DIAMICRON [Concomitant]
     Dosage: STRENGTH: 30 MG
     Route: 048
     Dates: start: 20130117
  7. HEMIGOXINE NATIVELLE [Concomitant]
     Dosage: STRENGTH: 0.125 MG
     Route: 048
     Dates: start: 20130117
  8. LASILIX [Concomitant]
     Dosage: STRENGTH: 40 MG
     Route: 048
     Dates: start: 20130117
  9. SEVIKAR [Concomitant]
     Dosage: STRENGTH: 40 MG/ 10 MG
     Route: 048
     Dates: start: 20130119
  10. LOXEN [Concomitant]
     Dosage: STRENGTH: 20 MG
     Route: 048
     Dates: start: 20130123
  11. IMOVANE [Concomitant]
     Dosage: STRENGTH: 3.75 MG
     Route: 048
     Dates: start: 20130123
  12. ATROVENT [Concomitant]
     Dosage: FORM: SOLUTION FOR INHALATIONAL, STRENGTH: 0.5 MG/ML
     Route: 055
     Dates: start: 20130116
  13. CREON [Concomitant]
     Dosage: STRENGTH: 25000 U, FORM: GASTRO RESISTNT GRANULES FOR CAPSULES DOSE:4 UNIT(S)
     Route: 048
     Dates: start: 20130116
  14. TERBUTALINE SULFATE [Concomitant]
     Dosage: DOSE:1 UNIT(S)
     Route: 055
     Dates: start: 20130116

REACTIONS (3)
  - Rectal haemorrhage [Recovered/Resolved]
  - Drug interaction [Unknown]
  - Haemoglobin decreased [Unknown]
